FAERS Safety Report 10465020 (Version 1)
Quarter: 2014Q3

REPORT INFORMATION
  Report Type: Spontaneous
  Country: US (occurrence: US)
  Receive Date: 20140919
  Receipt Date: 20140919
  Transmission Date: 20150326
  Serious: Yes (Death, Hospitalization, Other)
  Sender: FDA-Public Use
  Company Number: US-GLAXOSMITHKLINE-B1034965A

PATIENT
  Age: 21 Year
  Sex: Female

DRUGS (4)
  1. PHENOBARBITAL. [Suspect]
     Active Substance: PHENOBARBITAL
     Indication: CONVULSION
     Route: 065
  2. PHENYTOIN. [Suspect]
     Active Substance: PHENYTOIN
     Indication: CONVULSION
     Route: 065
  3. LAMOTRIGINE. [Suspect]
     Active Substance: LAMOTRIGINE
     Indication: CONVULSION
     Route: 065
  4. LEVETIRACETAM. [Suspect]
     Active Substance: LEVETIRACETAM
     Indication: CONVULSION
     Route: 065

REACTIONS (22)
  - Cachexia [Unknown]
  - Eosinophilia [Unknown]
  - Malnutrition [Unknown]
  - Hypotension [Unknown]
  - Hepatitis [Unknown]
  - Abdominal pain [Unknown]
  - Rash [Unknown]
  - Enterocolitis [Fatal]
  - Nausea [Unknown]
  - Pyrexia [Unknown]
  - Pancreatitis [Unknown]
  - Colitis [Unknown]
  - Vomiting [Unknown]
  - Drug reaction with eosinophilia and systemic symptoms [Fatal]
  - Histiocytosis haematophagic [Fatal]
  - Pancytopenia [Unknown]
  - Serum ferritin increased [Unknown]
  - Multi-organ failure [Fatal]
  - Thrombocytopenia [Unknown]
  - Diarrhoea [Unknown]
  - Functional gastrointestinal disorder [Unknown]
  - Tachycardia [Unknown]
